FAERS Safety Report 8763139 (Version 1)
Quarter: 2012Q4

REPORT INFORMATION
  Report Type: 
  Country: US (occurrence: US)
  Receive Date: 20120831
  Receipt Date: 20120831
  Transmission Date: 20130627
  Serious: No
  Sender: FDA-Public Use
  Company Number: US-B.I. PHARMACEUTICALS,INC./RIDGEFIELD-2012-BP-20832BP

PATIENT
  Age: 70 Year
  Sex: Male

DRUGS (8)
  1. SPIRIVA [Suspect]
     Indication: DYSPNOEA
     Dosage: 18 mcg
     Route: 055
     Dates: start: 201207
  2. SPIRIVA [Suspect]
     Route: 048
     Dates: start: 20120824, end: 20120824
  3. PROZAC [Concomitant]
     Route: 048
  4. AVADART [Concomitant]
     Route: 048
  5. VOLTAREN [Concomitant]
     Indication: ARTHRITIS
     Route: 048
  6. SOTOLOL [Concomitant]
     Route: 048
  7. PRADAXA [Concomitant]
     Indication: ATRIAL FIBRILLATION
     Dosage: 300 mg
     Route: 048
     Dates: start: 2011
  8. FLOMAX [Concomitant]
     Indication: BENIGN PROSTATIC HYPERPLASIA
     Dosage: 0.4 mg
     Route: 048

REACTIONS (1)
  - Incorrect route of drug administration [Recovered/Resolved]
